FAERS Safety Report 19020179 (Version 1)
Quarter: 2021Q1

REPORT INFORMATION
  Report Type: Spontaneous
  Country: US (occurrence: US)
  Receive Date: 20210317
  Receipt Date: 20210317
  Transmission Date: 20210420
  Serious: Yes (Hospitalization)
  Sender: FDA-Public Use
  Company Number: US-ACCORD-219593

PATIENT
  Age: 57 Year
  Sex: Male
  Weight: 99 kg

DRUGS (37)
  1. ATIVAN [Concomitant]
     Active Substance: LORAZEPAM
     Dosage: 1 MG, Q6HR, 0 DOSE(S) LAST 24 HRS
     Route: 048
  2. COREG [Concomitant]
     Active Substance: CARVEDILOL
     Dosage: BID
     Route: 048
  3. DILAUDID [Concomitant]
     Active Substance: HYDROMORPHONE HYDROCHLORIDE
     Dosage: 2 MG, Q4HR, 4 DOSE(S) LAST 24 HRS
     Route: 048
  4. ZOLOFT [Concomitant]
     Active Substance: SERTRALINE HYDROCHLORIDE
     Dosage: 100 MG, QDAY
     Route: 048
     Dates: start: 20210205
  5. ONDANSETRON [Concomitant]
     Active Substance: ONDANSETRON
     Indication: NAUSEA
     Dosage: 4 MG, Q8HR, 0 DOSE(S) LAST 24 HRS
     Route: 042
  6. CISPLATIN. [Suspect]
     Active Substance: CISPLATIN
     Indication: PRODUCT USED FOR UNKNOWN INDICATION
     Dosage: 60 MG/M2, MONTHLY
     Route: 065
     Dates: start: 20201118, end: 20201218
  7. METFORMIN [Concomitant]
     Active Substance: METFORMIN HYDROCHLORIDE
     Dosage: 500 MG
     Route: 048
  8. OXYCONTIN [Concomitant]
     Active Substance: OXYCODONE HYDROCHLORIDE
     Dosage: 15 MG
     Route: 048
  9. PROMETHAZINE [Concomitant]
     Active Substance: PROMETHAZINE HYDROCHLORIDE
     Dosage: 12.5 MG, Q6HR
     Route: 054
  10. SALBUTAMOL [Concomitant]
     Active Substance: ALBUTEROL
     Dosage: 2.5 MG Q6HR, 0 DOSE(S) LAST 24 HRS
     Route: 055
  11. SYMBICORT [Concomitant]
     Active Substance: BUDESONIDE\FORMOTEROL FUMARATE DIHYDRATE
     Dosage: 160 MCG?4.5 MCG/INH
     Route: 055
  12. INCRUSE ELLIPTA [Concomitant]
     Active Substance: UMECLIDINIUM BROMIDE
     Dosage: 62.5 MCG/INH, Q24HR
  13. MAGNESIUM OXIDE. [Concomitant]
     Active Substance: MAGNESIUM OXIDE
     Dosage: 400 MG, BID, (240 MG ELEMENTAL MAGNESIUM)
     Route: 048
     Dates: start: 20210205
  14. POVIDONE?IODINE. [Concomitant]
     Active Substance: POVIDONE-IODINE
     Dosage: NASAL ANTISEPSIS WITH POVIDONE?IODINE 5%
     Route: 061
     Dates: start: 20210204
  15. SENNA ALEXANDRINA [Concomitant]
     Active Substance: SENNA LEAF
     Indication: CONSTIPATION
     Dosage: 17.2 MG, BID, 0 DOSE(S) LAST 24 HRS
     Route: 048
     Dates: start: 20210204
  16. ENOXAPARIN [Concomitant]
     Active Substance: ENOXAPARIN
     Dosage: 40 MG?0.4 ML, QDAY
     Route: 058
  17. LASIX [Concomitant]
     Active Substance: FUROSEMIDE
  18. PROMETHAZINE [Concomitant]
     Active Substance: PROMETHAZINE HYDROCHLORIDE
     Dosage: 12.5 MG, Q6HR
     Route: 048
  19. RELION HUMULIN R [Concomitant]
  20. INSULIN GLARGINE [Concomitant]
     Active Substance: INSULIN GLARGINE
     Dosage: 100 UNITS/ML, QDAY, 20 UNIT
     Route: 058
  21. MIRTAZAPINE. [Concomitant]
     Active Substance: MIRTAZAPINE
     Dosage: 7.5 MG
     Route: 048
  22. OMEGA?3 FATTY ACIDS [Concomitant]
     Active Substance: OMEGA-3 FATTY ACIDS
     Dosage: OMEGA?3 POLYUNSATURATED FATTY ACIDS
     Route: 048
  23. DOCUSATE/DOCUSATE CALCIUM/DOCUSATE POTASSIUM/DOCUSATE SODIUM [Concomitant]
     Active Substance: DOCUSATE
     Dosage: 100 MG, Q12HR
     Route: 048
     Dates: start: 20210204
  24. PIPERACILLIN/TAZOBACTAM [Concomitant]
     Active Substance: PIPERACILLIN SODIUM\TAZOBACTAM SODIUM
     Dosage: 4.5 GM, EVERY 8HR
     Route: 042
     Dates: start: 20210205
  25. SODIUM CHLORIDE. [Concomitant]
     Active Substance: SODIUM CHLORIDE
     Dosage: 1,000 ML (NS 1,000 ML) 1,000 ML 100 ML/HR
     Route: 042
     Dates: start: 20210204
  26. GLIMEPIRIDE. [Concomitant]
     Active Substance: GLIMEPIRIDE
     Dosage: 2 MG, BID
     Route: 048
  27. ISOSORBIDE. [Concomitant]
     Active Substance: ISOSORBIDE
     Dosage: 60 MG, QAM
     Route: 048
     Dates: start: 20210205
  28. CLONIDINE. [Concomitant]
     Active Substance: CLONIDINE
  29. LOSARTAN. [Concomitant]
     Active Substance: LOSARTAN
  30. INSULIN BOVINE [Concomitant]
     Dosage: 100 UNITS/ML, 20 UNIT(S), AC B/L/D;
     Route: 058
  31. ONDANSETRON [Concomitant]
     Active Substance: ONDANSETRON
     Indication: NAUSEA
     Dosage: 8 MG, Q6HR
     Route: 048
  32. PALBOCICLIB [Suspect]
     Active Substance: PALBOCICLIB
     Indication: PRODUCT USED FOR UNKNOWN INDICATION
     Dosage: STRENGTH?100 MG, DAILY
     Route: 065
     Dates: start: 20201118, end: 20210108
  33. MIRALAX [Concomitant]
     Active Substance: POLYETHYLENE GLYCOL 3350
     Dosage: 17 GM, QDAY
     Route: 048
  34. PROCHLORPERAZINE. [Concomitant]
     Active Substance: PROCHLORPERAZINE
     Indication: NAUSEA
     Dosage: 10 MG, Q6HR, 0 DOSE(S) LAST 24 HRS
     Route: 048
  35. GLYXAMBI [Concomitant]
     Active Substance: EMPAGLIFLOZIN\LINAGLIPTIN
     Dosage: STRENGTH?10 MG?5 MG, 1 TAB(S), QAM
     Route: 048
  36. LIDOCAINE/PRILOCAINE [Concomitant]
     Active Substance: LIDOCAINE\PRILOCAINE
  37. PANTOPRAZOLE [Concomitant]
     Active Substance: PANTOPRAZOLE
     Dosage: 40 MG
     Route: 048

REACTIONS (1)
  - Failure to thrive [Not Recovered/Not Resolved]

NARRATIVE: CASE EVENT DATE: 20210204
